FAERS Safety Report 16313359 (Version 1)
Quarter: 2019Q2

REPORT INFORMATION
  Report Type: Spontaneous
  Country: US (occurrence: US)
  Receive Date: 20190515
  Receipt Date: 20190515
  Transmission Date: 20190711
  Serious: Yes (Hospitalization)
  Sender: FDA-Public Use
  Company Number: US-PERRIGO-19US005622

PATIENT
  Age: 52 Year
  Sex: Female
  Weight: 53.06 kg

DRUGS (2)
  1. IBUPROFEN AND DIPHENHYDRAMINE CITRATE [Suspect]
     Active Substance: DIPHENHYDRAMINE CITRATE\IBUPROFEN
     Indication: ABDOMINAL DISCOMFORT
     Dosage: 2 TABLETS, NIGHTLY
     Route: 048
  2. IBUPROFEN AND DIPHENHYDRAMINE CITRATE [Suspect]
     Active Substance: DIPHENHYDRAMINE CITRATE\IBUPROFEN
     Indication: INSOMNIA

REACTIONS (2)
  - Off label use [Unknown]
  - Ulcer haemorrhage [Recovered/Resolved]

NARRATIVE: CASE EVENT DATE: 20190424
